FAERS Safety Report 7653822-8 (Version None)
Quarter: 2011Q3

REPORT INFORMATION
  Report Type: 
  Country: None (occurrence: None)
  Receive Date: 20110803
  Receipt Date: 20110801
  Transmission Date: 20111222
  Serious: Yes (Death)
  Sender: FDA-Public Use
  Company Number: TH-PFIZER INC-2010158102

PATIENT
  Age: 60 Year
  Sex: Female

DRUGS (5)
  1. FOLIC ACID [Concomitant]
     Dosage: 1 TABLET, 1X/DAY
     Route: 048
     Dates: start: 20100212, end: 20100222
  2. MOTILIUM-M [Concomitant]
     Dosage: 1 TABLET, 3X/DAY
     Route: 048
     Dates: start: 20100212, end: 20100222
  3. TRAMADOL HYDROCHLORIDE [Concomitant]
     Dosage: 50 MG, AS NEEDED
     Route: 048
     Dates: start: 20100212, end: 20100222
  4. SUTENT [Suspect]
     Indication: GASTROINTESTINAL STROMAL TUMOUR
     Dosage: 50 MG, 1X/DAY
     Route: 048
     Dates: start: 20100212, end: 20100220
  5. FERROUS SULFATE TAB [Concomitant]
     Dosage: 1 TABLET, 2X/DAY
     Dates: start: 20100212, end: 20100222

REACTIONS (2)
  - GASTROINTESTINAL STROMAL TUMOUR [None]
  - DISEASE PROGRESSION [None]
